FAERS Safety Report 11282231 (Version 12)
Quarter: 2018Q2

REPORT INFORMATION
  Report Type: Report from Study
  Country: BR (occurrence: BR)
  Receive Date: 20150720
  Receipt Date: 20180417
  Transmission Date: 20180711
  Serious: Yes (Hospitalization, Disabling, Other)
  Sender: FDA-Public Use
  Company Number: BR-ROCHE-1608253

PATIENT
  Age: 53 Year
  Sex: Female
  Weight: 48 kg

DRUGS (17)
  1. MABTHERA [Suspect]
     Active Substance: RITUXIMAB
     Route: 042
     Dates: start: 201505
  2. LABIRIN [Concomitant]
     Active Substance: BETAHISTINE
     Dosage: DAILY
     Route: 065
  3. MABTHERA [Suspect]
     Active Substance: RITUXIMAB
     Route: 042
     Dates: start: 20140321
  4. METICORTEN [Concomitant]
     Active Substance: PREDNISONE
     Dosage: ONE TABLET IN THE MORNING AND ONE AT NIGHT
     Route: 065
  5. VIVACOR (BRAZIL) [Concomitant]
  6. OMEPRAZOL [Concomitant]
     Active Substance: OMEPRAZOLE
     Dosage: IN THE MORNING AND AT NIGHT
     Route: 065
  7. PREDNISONE. [Concomitant]
     Active Substance: PREDNISONE
     Indication: RHEUMATOID ARTHRITIS
     Route: 065
     Dates: start: 2001
  8. MABTHERA [Suspect]
     Active Substance: RITUXIMAB
     Indication: RHEUMATOID ARTHRITIS
     Dosage: DATE OF THE MOST RECENT DOSE ON: 23/DEC/2015
     Route: 042
     Dates: start: 20140509
  9. PROLIA [Concomitant]
     Active Substance: DENOSUMAB
     Indication: OSTEOPOROSIS
     Route: 058
     Dates: start: 201408
  10. TRAMAL [Concomitant]
     Active Substance: TRAMADOL
     Route: 065
  11. PANTOPRAZOLE [Concomitant]
     Active Substance: PANTOPRAZOLE
     Route: 065
  12. LABIRIN [Concomitant]
     Active Substance: BETAHISTINE
     Indication: LABYRINTHITIS
     Route: 065
  13. VIMOVO [Suspect]
     Active Substance: ESOMEPRAZOLE MAGNESIUM\NAPROXEN
     Indication: INFLAMMATION
     Dosage: DAILY
     Route: 065
  14. ALENDRONATE SODIUM HYDRATE [Concomitant]
     Active Substance: ALENDRONATE SODIUM
     Indication: OSTEOPOROSIS
  15. PREDNISOLONE. [Concomitant]
     Active Substance: PREDNISOLONE
     Dosage: 5-10 MG
     Route: 048
     Dates: start: 2001
  16. PACO [Concomitant]
     Active Substance: ACETAMINOPHEN\CODEINE PHOSPHATE
  17. VICOG [Concomitant]
     Active Substance: VINPOCETINE

REACTIONS (35)
  - Movement disorder [Not Recovered/Not Resolved]
  - Sinusitis [Unknown]
  - Formication [Unknown]
  - Rhinitis [Not Recovered/Not Resolved]
  - Food allergy [Not Recovered/Not Resolved]
  - Somnolence [Recovered/Resolved]
  - Catarrh [Unknown]
  - Feeling abnormal [Unknown]
  - Spinal osteoarthritis [Unknown]
  - Nausea [Recovered/Resolved]
  - Milk allergy [Unknown]
  - Ill-defined disorder [Unknown]
  - Arthralgia [Unknown]
  - Cataract [Not Recovered/Not Resolved]
  - Immunodeficiency [Not Recovered/Not Resolved]
  - Pruritus [Not Recovered/Not Resolved]
  - Gait inability [Not Recovered/Not Resolved]
  - Musculoskeletal stiffness [Not Recovered/Not Resolved]
  - Blood cholesterol increased [Unknown]
  - Dysstasia [Not Recovered/Not Resolved]
  - Spinal pain [Not Recovered/Not Resolved]
  - Dysuria [Unknown]
  - Pain [Not Recovered/Not Resolved]
  - Discomfort [Unknown]
  - Cough [Not Recovered/Not Resolved]
  - Gastritis bacterial [Not Recovered/Not Resolved]
  - Arthralgia [Not Recovered/Not Resolved]
  - Abdominal pain [Recovered/Resolved]
  - Tremor [Recovered/Resolved]
  - Gastrooesophageal reflux disease [Unknown]
  - Influenza [Not Recovered/Not Resolved]
  - Body height decreased [Unknown]
  - Weight decreased [Unknown]
  - Pharyngitis bacterial [Not Recovered/Not Resolved]
  - Influenza [Recovering/Resolving]

NARRATIVE: CASE EVENT DATE: 201504
